FAERS Safety Report 8942509 (Version 9)
Quarter: 2014Q3

REPORT INFORMATION
  Report Type: Report from Study
  Country: DE (occurrence: DE)
  Receive Date: 20121204
  Receipt Date: 20140930
  Transmission Date: 20150326
  Serious: Yes (Death, Hospitalization, Other)
  Sender: FDA-Public Use
  Company Number: DE-UCBSA-072286

PATIENT
  Age: 78 Year
  Sex: Male
  Weight: 74 kg

DRUGS (18)
  1. INSUMAN RAPID [Concomitant]
     Active Substance: INSULIN HUMAN
     Indication: DIABETES MELLITUS
     Dosage: 8 IU 2 TIMES A DAY. 10 IU ONCE A DAY.
  2. ARAVA [Concomitant]
     Active Substance: LEFLUNOMIDE
     Indication: POLYARTHRITIS
     Dosage: 20 MG, ONCE DAILY (QD)
     Dates: start: 20100419
  3. VOTUM PLUS [Concomitant]
     Active Substance: HYDROCHLOROTHIAZIDE\OLMESARTAN MEDOXOMIL
     Indication: HYPERTENSION
     Dosage: 20/25 MG
  4. TOREM [Concomitant]
     Active Substance: TORSEMIDE
     Indication: HYPERTENSION
     Dosage: 10 MG, ONCE DAILY (QD)
  5. AMLODIPINE [Concomitant]
     Active Substance: AMLODIPINE BESYLATE
     Indication: HYPERTENSION
  6. LEVOFLOXACIN [Concomitant]
     Active Substance: LEVOFLOXACIN
     Dates: start: 2012, end: 2012
  7. CERTOLIZUMAB PEGOL RA [Suspect]
     Active Substance: CERTOLIZUMAB PEGOL
     Indication: RHEUMATOID ARTHRITIS
     Dosage: 200 MG, EV 2 WEEKS(QOW)
     Route: 058
     Dates: start: 201010, end: 20120921
  8. SIMVALIP [Concomitant]
     Indication: LIPIDS INCREASED
     Dosage: 40 MG, ONCE DAILY (QD)
  9. DIGITOXIN [Concomitant]
     Active Substance: DIGITOXIN
     Indication: CARDIAC FAILURE
     Dosage: .05 MG, ONCE DAILY (QD)
  10. METFORMIN [Concomitant]
     Active Substance: METFORMIN HYDROCHLORIDE
     Indication: DIABETES MELLITUS
     Dosage: 1000 MG, 2X/DAY (BID)
  11. INSUMAN BASAL [Concomitant]
     Indication: DIABETES MELLITUS
     Dosage: 16 IU, ONCE DAILY (QD)
  12. ASPIRIN. [Concomitant]
     Active Substance: ASPIRIN
     Indication: TRANSIENT ISCHAEMIC ATTACK
     Dosage: 300 MG 0.5 ONCE DAILY
     Dates: start: 20101119
  13. METOPROLOL [Concomitant]
     Active Substance: METOPROLOL
     Indication: HYPERTENSION
     Dosage: 50 MG, ONCE DAILY (QD)
  14. CLOPIDOGREL [Concomitant]
     Active Substance: CLOPIDOGREL BISULFATE
     Indication: TRANSIENT ISCHAEMIC ATTACK
     Dosage: 75 MG, ONCE DAILY (QD)
  15. FERROSANOL DUODENAL [Concomitant]
     Active Substance: FERROGLYCINE SULFATE
     Dosage: UNKNOWN DOSE
     Dates: start: 2012
  16. AMLODIPINE [Concomitant]
     Active Substance: AMLODIPINE BESYLATE
     Indication: HYPERTENSION
     Dosage: 10 MG, ONCE DAILY (QD)
  17. PREDNISOLONE. [Concomitant]
     Active Substance: PREDNISOLONE
     Indication: POLYARTHRITIS
     Dosage: 5 MG, ONCE DAILY (QD)
     Dates: start: 20090512
  18. NEPRESSOL [Concomitant]
     Indication: HYPERTENSION
     Dosage: 25 MG, 2X/DAY (BID)

REACTIONS (5)
  - Anaemia [Not Recovered/Not Resolved]
  - Small cell lung cancer [Fatal]
  - Pneumonia [Not Recovered/Not Resolved]
  - Sepsis [Not Recovered/Not Resolved]
  - Pleural effusion [Not Recovered/Not Resolved]

NARRATIVE: CASE EVENT DATE: 201209
